FAERS Safety Report 9702506 (Version 1)
Quarter: 2013Q4

REPORT INFORMATION
  Report Type: Spontaneous
  Country: GB (occurrence: GB)
  Receive Date: 20131121
  Receipt Date: 20131121
  Transmission Date: 20140711
  Serious: Yes (Hospitalization)
  Sender: FDA-Public Use
  Company Number: GB-BANPHARM-20131886

PATIENT
  Age: 75 Year
  Sex: 0

DRUGS (2)
  1. IBUPROFEN UNKNOWN PRODUCT [Suspect]
     Dosage: 400 MG, BID,
     Route: 048
     Dates: end: 20131019
  2. GOLDSHIELD GROUP FENBID [Suspect]
     Route: 061
     Dates: start: 20130913, end: 20131019

REACTIONS (2)
  - Duodenal ulcer [Recovering/Resolving]
  - Duodenal ulcer perforation [Recovering/Resolving]
